FAERS Safety Report 13902116 (Version 1)
Quarter: 2017Q3

REPORT INFORMATION
  Report Type: Spontaneous
  Country: US (occurrence: US)
  Receive Date: 20170824
  Receipt Date: 20170824
  Transmission Date: 20171127
  Serious: Yes (Other)
  Sender: FDA-Public Use
  Company Number: US-ROCHE-1130821

PATIENT
  Age: 38 Year
  Sex: Female

DRUGS (6)
  1. MILTEFOSINE [Concomitant]
     Active Substance: MILTEFOSINE
     Route: 065
     Dates: start: 19980811
  2. ROCEPHIN [Concomitant]
     Active Substance: CEFTRIAXONE SODIUM
     Route: 042
  3. MOTRIN [Concomitant]
     Active Substance: IBUPROFEN
     Dosage: 400-600 MG
     Route: 065
  4. ZITHROMAX [Concomitant]
     Active Substance: AZITHROMYCIN DIHYDRATE
     Route: 048
  5. MILTEX [Concomitant]
     Active Substance: MILTEFOSINE
  6. HERCEPTIN [Suspect]
     Active Substance: TRASTUZUMAB
     Indication: BREAST CANCER METASTATIC
     Route: 065

REACTIONS (6)
  - Cellulitis [Unknown]
  - Pruritus [Unknown]
  - Lymphangitis [Recovered/Resolved]
  - Pain [Unknown]
  - Insomnia [Unknown]
  - Malaise [Unknown]
